FAERS Safety Report 16860046 (Version 1)
Quarter: 2019Q3

REPORT INFORMATION
  Report Type: Spontaneous
  Country: US (occurrence: US)
  Receive Date: 20190927
  Receipt Date: 20190927
  Transmission Date: 20191005
  Serious: Yes (Hospitalization)
  Sender: FDA-Public Use
  Company Number: US-ROCHE-2412554

PATIENT
  Age: 70 Year
  Sex: Male

DRUGS (11)
  1. ESBRIET [Suspect]
     Active Substance: PIRFENIDONE
     Indication: PRODUCT USED FOR UNKNOWN INDICATION
     Dosage: 3 X DAILY AT SAME TIME
     Route: 048
     Dates: start: 20190513
  2. ELIQUIS [Concomitant]
     Active Substance: APIXABAN
  3. CITRUCEL [Concomitant]
     Active Substance: METHYLCELLULOSE (4000 MPA.S)
  4. OXYBUTIN [Concomitant]
     Active Substance: OXYBUTYNIN
  5. AMIODARONE [Concomitant]
     Active Substance: AMIODARONE
  6. TRADJENTA [Concomitant]
     Active Substance: LINAGLIPTIN
  7. ALFUZOSIN [Concomitant]
     Active Substance: ALFUZOSIN
  8. METOPROLOL. [Concomitant]
     Active Substance: METOPROLOL
  9. PLAVIX [Concomitant]
     Active Substance: CLOPIDOGREL BISULFATE
  10. GLIMEPIRIDE. [Concomitant]
     Active Substance: GLIMEPIRIDE
  11. PANTOPRAZOLE [Concomitant]
     Active Substance: PANTOPRAZOLE

REACTIONS (3)
  - Intentional product use issue [Unknown]
  - Off label use [Unknown]
  - Cardiac disorder [Unknown]

NARRATIVE: CASE EVENT DATE: 20190807
